FAERS Safety Report 15163402 (Version 2)
Quarter: 2018Q3

REPORT INFORMATION
  Report Type: Spontaneous
  Country: CL (occurrence: CL)
  Receive Date: 20180719
  Receipt Date: 20180731
  Transmission Date: 20181010
  Serious: Yes (Other)
  Sender: FDA-Public Use
  Company Number: CL-MERCK KGAA-2052368

PATIENT
  Sex: Female

DRUGS (1)
  1. NOVOTHYROX [Suspect]
     Active Substance: LEVOTHYROXINE SODIUM
     Indication: THYROID DISORDER

REACTIONS (9)
  - Hair texture abnormal [None]
  - Weight loss poor [None]
  - Dry skin [None]
  - Thyroid cancer [None]
  - Listless [None]
  - Palpitations [None]
  - Weight increased [None]
  - Depressed mood [None]
  - Alopecia [None]
